FAERS Safety Report 10570654 (Version 2)
Quarter: 2015Q1

REPORT INFORMATION
  Report Type: Spontaneous
  Country: US (occurrence: US)
  Receive Date: 20141107
  Receipt Date: 20150108
  Transmission Date: 20150720
  Serious: Yes (Other)
  Sender: FDA-Public Use
  Company Number: US-JNJFOC-20141102561

PATIENT
  Sex: Female

DRUGS (7)
  1. TRAMADOL HYDROCHLORIDE. [Suspect]
     Active Substance: TRAMADOL HYDROCHLORIDE
     Indication: ANALGESIC THERAPY
     Route: 065
  2. AMITRIPTYLIN [Suspect]
     Active Substance: AMITRIPTYLINE
     Indication: DEPRESSION
     Route: 065
  3. XANAX [Suspect]
     Active Substance: ALPRAZOLAM
     Indication: ANALGESIC THERAPY
     Route: 065
  4. EXCEDRIN [Suspect]
     Active Substance: ACETAMINOPHEN\ASPIRIN\CAFFEINE
     Indication: ANALGESIC THERAPY
     Route: 065
  5. PERCOCET [Suspect]
     Active Substance: ACETAMINOPHEN\OXYCODONE HYDROCHLORIDE
     Indication: PRODUCT USED FOR UNKNOWN INDICATION
     Route: 065
     Dates: start: 20141022
  6. PERCOCET [Suspect]
     Active Substance: ACETAMINOPHEN\OXYCODONE HYDROCHLORIDE
     Indication: PRODUCT USED FOR UNKNOWN INDICATION
     Dosage: 1/2 A PILL
     Route: 065
  7. AMITRIPTYLIN [Suspect]
     Active Substance: AMITRIPTYLINE
     Indication: PAIN
     Route: 065

REACTIONS (4)
  - Drug ineffective [Unknown]
  - Dyspnoea [Unknown]
  - Intervertebral disc protrusion [Unknown]
  - Brain injury [Unknown]
